FAERS Safety Report 10095098 (Version 1)
Quarter: 2014Q2

REPORT INFORMATION
  Report Type: Spontaneous
  Country: CA (occurrence: CA)
  Receive Date: 20140422
  Receipt Date: 20140422
  Transmission Date: 20141212
  Serious: Yes (Other)
  Sender: FDA-Public Use
  Company Number: CA-ABBVIE-14K-028-1226359-00

PATIENT
  Age: 54 Year
  Sex: Male

DRUGS (11)
  1. KALETRA [Suspect]
     Indication: PRODUCT USED FOR UNKNOWN INDICATION
  2. VALPROIC ACID [Interacting]
     Indication: PRODUCT USED FOR UNKNOWN INDICATION
  3. ATAZANAVIR [Interacting]
     Indication: PRODUCT USED FOR UNKNOWN INDICATION
  4. BUPROPION [Interacting]
     Indication: PRODUCT USED FOR UNKNOWN INDICATION
  5. CLONAZEPAM [Interacting]
     Indication: PRODUCT USED FOR UNKNOWN INDICATION
  6. ISENTRESS [Interacting]
     Indication: PRODUCT USED FOR UNKNOWN INDICATION
     Route: 048
  7. LAMIVUDINE [Interacting]
     Indication: PRODUCT USED FOR UNKNOWN INDICATION
  8. QUETIAPINE FUMARATE [Interacting]
     Indication: PRODUCT USED FOR UNKNOWN INDICATION
  9. SERTRALINE HYDROCHLORIDE [Interacting]
     Indication: PRODUCT USED FOR UNKNOWN INDICATION
  10. SUSTIVA [Interacting]
     Indication: PRODUCT USED FOR UNKNOWN INDICATION
     Route: 048
  11. ZOPICLONE [Interacting]
     Indication: PRODUCT USED FOR UNKNOWN INDICATION

REACTIONS (2)
  - Drug interaction [Unknown]
  - Depression [Unknown]
